FAERS Safety Report 25431148 (Version 1)
Quarter: 2025Q2

REPORT INFORMATION
  Report Type: Spontaneous
  Country: US (occurrence: None)
  Receive Date: 20250613
  Receipt Date: 20250613
  Transmission Date: 20250716
  Serious: No
  Sender: OREXO
  Company Number: US-Orexo US, Inc.-ORE202411-000043

PATIENT

DRUGS (1)
  1. ZUBSOLV [Suspect]
     Active Substance: BUPRENORPHINE HYDROCHLORIDE\NALOXONE HYDROCHLORIDE
     Indication: Product used for unknown indication
     Route: 060

REACTIONS (2)
  - Malaise [Unknown]
  - Product dose omission issue [Unknown]
